FAERS Safety Report 18750502 (Version 2)
Quarter: 2021Q1

REPORT INFORMATION
  Report Type: Spontaneous
  Country: US (occurrence: US)
  Receive Date: 20210118
  Receipt Date: 20210219
  Transmission Date: 20210419
  Serious: No
  Sender: FDA-Public Use
  Company Number: US-BIOVITRUM-2021US0431

PATIENT
  Age: 1 Year
  Sex: Female
  Weight: 6.8 kg

DRUGS (5)
  1. SYNAGIS [Suspect]
     Active Substance: PALIVIZUMAB
     Indication: ANTIVIRAL PROPHYLAXIS
  2. SOY FORMULA [Concomitant]
     Dosage: 500?200?45 TABLET
  3. SYNAGIS [Suspect]
     Active Substance: PALIVIZUMAB
     Indication: ANAL ATRESIA
     Route: 030
     Dates: start: 20201104
  4. SYNAGIS [Suspect]
     Active Substance: PALIVIZUMAB
     Indication: SPINE MALFORMATION
  5. SULFATRIM [Concomitant]
     Active Substance: SULFAMETHOXAZOLE\TRIMETHOPRIM
     Dosage: 200?40MG/5 ORAL SUSP

REACTIONS (3)
  - Illness [Unknown]
  - Weight decreased [Not Recovered/Not Resolved]
  - Off label use [Unknown]

NARRATIVE: CASE EVENT DATE: 20201104
